FAERS Safety Report 11389576 (Version 1)
Quarter: 2015Q3

REPORT INFORMATION
  Report Type: Spontaneous
  Country: US (occurrence: US)
  Receive Date: 20150817
  Receipt Date: 20150817
  Transmission Date: 20151125
  Serious: No
  Sender: FDA-Public Use
  Company Number: US-TAKEDA-2014TUS013904

PATIENT
  Age: 90 Year
  Sex: Male

DRUGS (1)
  1. ROZEREM [Suspect]
     Active Substance: RAMELTEON
     Indication: INSOMNIA
     Dosage: UNK
     Route: 048

REACTIONS (2)
  - Sensation of foreign body [Unknown]
  - Middle insomnia [Unknown]

NARRATIVE: CASE EVENT DATE: 20141210
